FAERS Safety Report 6649645-9 (Version None)
Quarter: 2010Q1

REPORT INFORMATION
  Report Type: 
  Country: None (occurrence: None)
  Receive Date: 20100324
  Receipt Date: 20091013
  Transmission Date: 20100710
  Serious: No
  Sender: FDA-Public Use
  Company Number: US-AMGEN-KDL369010

PATIENT
  Sex: Female

DRUGS (1)
  1. NEULASTA [Suspect]
     Indication: CHEMOTHERAPY

REACTIONS (3)
  - BONE PAIN [None]
  - MOBILITY DECREASED [None]
  - WHEELCHAIR USER [None]
